FAERS Safety Report 8757078 (Version 2)
Quarter: 2013Q1

REPORT INFORMATION
  Report Type: Spontaneous
  Country: AU (occurrence: AU)
  Receive Date: 20120828
  Receipt Date: 20130312
  Transmission Date: 20140127
  Serious: Yes (Hospitalization)
  Sender: FDA-Public Use
  Company Number: AU-GENZYME-THYM-1003384

PATIENT
  Age: 48 Year
  Sex: Male
  Weight: 100 kg

DRUGS (2)
  1. THYMOGLOBULIN [Suspect]
     Indication: TRANSPLANT REJECTION
     Dosage: 3 MG/KG, QD
     Route: 065
     Dates: start: 20110903, end: 20110905
  2. THYMOGLOBULIN [Suspect]
     Dosage: 1.5 MG/KG, QD
     Route: 065
     Dates: start: 20110906, end: 20110908

REACTIONS (9)
  - Allodynia [Recovered/Resolved]
  - Immobile [Recovered/Resolved]
  - Temporomandibular joint syndrome [Recovered/Resolved]
  - White blood cell count increased [Recovered/Resolved]
  - Serum sickness [Unknown]
  - Neutropenia [Recovered/Resolved]
  - Arthralgia [Recovered/Resolved]
  - Myalgia [Recovered/Resolved]
  - Pyrexia [Recovered/Resolved]
